FAERS Safety Report 4692458-8 (Version None)
Quarter: 2005Q2

REPORT INFORMATION
  Report Type: 
  Country: None (occurrence: None)
  Receive Date: 20050613
  Receipt Date: 20050420
  Transmission Date: 20051028
  Serious: Yes (Hospitalization)
  Sender: FDA-Public Use
  Company Number: 2005-00680

PATIENT
  Age: 79 Year
  Sex: Male

DRUGS (3)
  1. VELCADE [Suspect]
     Indication: MULTIPLE MYELOMA
     Dosage: 5.40 MG, 2/WEEK, INTRAVENOUS
     Route: 042
     Dates: start: 20041011, end: 20050106
  2. DOXIL [Suspect]
     Indication: MULTIPLE MYELOMA
     Dosage: 63.00 MG, Q3WEEKS, INTRAVENOUS
     Route: 042
     Dates: start: 20041014
  3. ZOMETA [Concomitant]

REACTIONS (2)
  - ASTHENIA [None]
  - PNEUMONIA [None]
